FAERS Safety Report 4532036-4 (Version None)
Quarter: 2004Q4

REPORT INFORMATION
  Report Type: 
  Country: None (occurrence: None)
  Receive Date: 20041220
  Receipt Date: 20041108
  Transmission Date: 20050328
  Serious: Yes (Life-Threatening)
  Sender: FDA-Public Use
  Company Number: JP-GLAXOSMITHKLINE-B0351247A

PATIENT
  Age: 50 Year
  Sex: Female
  Weight: 50 kg

DRUGS (13)
  1. ZOVIRAX [Suspect]
     Indication: HERPES ZOSTER
     Route: 048
     Dates: start: 20041006, end: 20041029
  2. MORPHINE HYDROCHLORIDE [Suspect]
     Indication: PHARYNGITIS
     Dosage: 20MG PER DAY
     Route: 042
     Dates: start: 20041020, end: 20041028
  3. MEROPEN [Suspect]
     Indication: SEPSIS
     Dosage: .5G TWICE PER DAY
     Route: 042
     Dates: start: 20041019, end: 20041101
  4. SANDIMMUNE [Suspect]
     Indication: PROPHYLAXIS AGAINST TRANSPLANT REJECTION
     Dosage: 50MG TWICE PER DAY
     Route: 042
     Dates: start: 20041012, end: 20041025
  5. PROGRAF [Concomitant]
     Indication: GRAFT VERSUS HOST DISEASE
     Route: 042
     Dates: start: 20041026
  6. SERENACE [Concomitant]
     Route: 065
  7. AMIKACIN SULFATE [Concomitant]
     Indication: SEPSIS
     Route: 042
     Dates: start: 20041020, end: 20041023
  8. CIPROXAN [Concomitant]
     Indication: SEPSIS
     Route: 042
     Dates: start: 20041020, end: 20041027
  9. FUNGIZONE [Concomitant]
     Indication: PNEUMONIA ASPERGILLUS
     Route: 042
     Dates: start: 20041005, end: 20041029
  10. BUSULFAN [Concomitant]
     Indication: BONE MARROW CONDITIONING REGIMEN
     Route: 048
     Dates: start: 20041006, end: 20041009
  11. ENDOXAN [Concomitant]
     Indication: BONE MARROW CONDITIONING REGIMEN
     Route: 042
     Dates: start: 20041010, end: 20041011
  12. SOLU-MEDROL [Concomitant]
     Indication: GRAFT VERSUS HOST DISEASE
     Route: 042
     Dates: start: 20041025, end: 20041104
  13. ANAFRANIL [Concomitant]
     Indication: DEPRESSION
     Route: 042
     Dates: start: 20041025, end: 20041026

REACTIONS (7)
  - BLOOD BILIRUBIN INCREASED [None]
  - BLOOD CREATININE INCREASED [None]
  - BLOOD LACTATE DEHYDROGENASE INCREASED [None]
  - BLOOD UREA INCREASED [None]
  - GAMMA-GLUTAMYLTRANSFERASE INCREASED [None]
  - NERVOUS SYSTEM DISORDER [None]
  - OVERDOSE [None]
